FAERS Safety Report 5558583-4 (Version None)
Quarter: 2007Q4

REPORT INFORMATION
  Report Type: 
  Country: None (occurrence: None)
  Receive Date: 20071214
  Receipt Date: 20071016
  Transmission Date: 20080405
  Serious: Yes (Other)
  Sender: FDA-Public Use
  Company Number: US-ABBOTT-07P-163-0415593-00

PATIENT
  Sex: Male
  Weight: 151.4 kg

DRUGS (5)
  1. HUMIRA [Suspect]
     Indication: PSORIATIC ARTHROPATHY
     Route: 058
     Dates: start: 20070802, end: 20070816
  2. GLIBOMET [Concomitant]
     Indication: TYPE 2 DIABETES MELLITUS
     Route: 048
     Dates: start: 20070801
  3. TRAMADOL HCL [Concomitant]
     Indication: ARTHRALGIA
     Route: 048
  4. LISINOPRIL [Concomitant]
     Indication: HEART RATE INCREASED
     Route: 048
     Dates: start: 20070801
  5. INEGY [Concomitant]
     Indication: BLOOD CHOLESTEROL INCREASED
     Route: 048
     Dates: start: 20070801

REACTIONS (9)
  - CARDIAC OUTPUT DECREASED [None]
  - FEELING ABNORMAL [None]
  - HEART RATE INCREASED [None]
  - HYPERHIDROSIS [None]
  - HYPOAESTHESIA [None]
  - MYOCARDIAL INFARCTION [None]
  - PAIN [None]
  - PARAESTHESIA [None]
  - STRESS [None]
